FAERS Safety Report 6110006-2 (Version None)
Quarter: 2009Q1

REPORT INFORMATION
  Report Type: 
  Country: None (occurrence: None)
  Receive Date: 20090309
  Receipt Date: 20090309
  Transmission Date: 20090719
  Serious: Yes (Other)
  Sender: FDA-Public Use
  Company Number: None

PATIENT
  Age: 5 Year
  Sex: Male
  Weight: 25.855 kg

DRUGS (1)
  1. ZINGO [Suspect]
     Indication: DERMATOMYOSITIS
     Dosage: 0.5 MG 1 ID
     Route: 023
     Dates: start: 20081216, end: 20081216

REACTIONS (4)
  - CONTUSION [None]
  - CRYING [None]
  - PAIN IN EXTREMITY [None]
  - PRODUCT QUALITY ISSUE [None]
